FAERS Safety Report 9992121 (Version 2)
Quarter: 2014Q2

REPORT INFORMATION
  Report Type: Spontaneous
  Country: DE (occurrence: DE)
  Receive Date: 20140310
  Receipt Date: 20140404
  Transmission Date: 20141212
  Serious: Yes (Other)
  Sender: FDA-Public Use
  Company Number: DE-JNJFOC-20140217461

PATIENT
  Sex: 0

DRUGS (7)
  1. HALOPERIDOL [Suspect]
     Indication: SCHIZOPHRENIA
     Route: 065
  2. RISPERIDONE [Suspect]
     Indication: PRODUCT USED FOR UNKNOWN INDICATION
     Route: 065
  3. AMISULPRIDE [Suspect]
     Indication: PRODUCT USED FOR UNKNOWN INDICATION
     Route: 065
  4. CLOZAPINE [Suspect]
     Indication: PRODUCT USED FOR UNKNOWN INDICATION
     Route: 065
  5. FLUPENTIXOL [Suspect]
     Indication: PRODUCT USED FOR UNKNOWN INDICATION
     Route: 065
  6. QUETIAPINE [Suspect]
     Indication: PRODUCT USED FOR UNKNOWN INDICATION
     Route: 065
  7. OLANZAPINE [Suspect]
     Indication: PRODUCT USED FOR UNKNOWN INDICATION
     Route: 065

REACTIONS (16)
  - Hepatic enzyme increased [Unknown]
  - Parkinsonism [Unknown]
  - Akathisia [Unknown]
  - Dystonia [Unknown]
  - Catatonia [Unknown]
  - Neuroleptic malignant syndrome [Unknown]
  - Tardive dyskinesia [Unknown]
  - Dyskinesia [Unknown]
  - Pleurothotonus [Unknown]
  - Generalised tonic-clonic seizure [Unknown]
  - Hypotension [Unknown]
  - Tachycardia [Unknown]
  - Electrocardiogram QT prolonged [Unknown]
  - Galactorrhoea [Unknown]
  - Weight increased [Unknown]
  - Blood disorder [Unknown]
